FAERS Safety Report 6019123-9 (Version None)
Quarter: 2008Q4

REPORT INFORMATION
  Report Type: 
  Country: None (occurrence: None)
  Receive Date: 20081224
  Receipt Date: 20081217
  Transmission Date: 20090506
  Serious: Yes (Life-Threatening, Hospitalization, Other)
  Sender: FDA-Public Use
  Company Number: CA-AVENTIS-200821775GDDC

PATIENT
  Age: 76 Year
  Sex: Male

DRUGS (8)
  1. INSULIN GLARGINE [Suspect]
     Indication: DIABETES MELLITUS
     Route: 058
     Dates: start: 20050714, end: 20081105
  2. OPTIPEN (INSULIN PUMP) [Suspect]
     Indication: DIABETES MELLITUS
     Dates: start: 20050714, end: 20081105
  3. CODE UNBROKEN [Suspect]
     Dosage: DOSE: UNK
     Route: 048
  4. LOSARTAN [Concomitant]
     Dosage: DOSE QUANTITY: 50
     Dates: start: 19970901
  5. CARVEDILOL [Concomitant]
     Route: 048
     Dates: start: 20000401
  6. FUROSEMIDE [Concomitant]
     Dates: start: 19951001
  7. ASPIRIN [Concomitant]
     Dates: start: 19930501
  8. SIMVASTATIN [Concomitant]
     Dates: start: 20000801

REACTIONS (4)
  - ASTHENIA [None]
  - DIZZINESS [None]
  - HYPOGLYCAEMIA [None]
  - SUBDURAL HAEMATOMA [None]
